FAERS Safety Report 24716253 (Version 2)
Quarter: 2025Q1

REPORT INFORMATION
  Report Type: Spontaneous
  Country: US (occurrence: US)
  Receive Date: 20241210
  Receipt Date: 20250218
  Transmission Date: 20250409
  Serious: Yes (Other)
  Sender: SANOFI AVENTIS
  Company Number: US-SANOFI-02333225

PATIENT
  Age: 62 Year
  Sex: Male

DRUGS (1)
  1. DUPIXENT [Suspect]
     Active Substance: DUPILUMAB
     Indication: Nasal polyps
     Dosage: 300 MG, QOW
     Route: 058
     Dates: start: 20240412

REACTIONS (5)
  - Ventricular tachycardia [Unknown]
  - Hypopnoea [Unknown]
  - Dyspnoea [Unknown]
  - Dizziness [Unknown]
  - Swelling face [Unknown]

NARRATIVE: CASE EVENT DATE: 20241204
